FAERS Safety Report 17213608 (Version 1)
Quarter: 2019Q4

REPORT INFORMATION
  Report Type: Spontaneous
  Country: JP (occurrence: JP)
  Receive Date: 20191230
  Receipt Date: 20191230
  Transmission Date: 20200122
  Serious: Yes (Other)
  Sender: FDA-Public Use
  Company Number: JP-PFIZER INC-2019472621

PATIENT
  Age: 80 Year
  Sex: Female

DRUGS (12)
  1. CADUET [Suspect]
     Active Substance: AMLODIPINE BESYLATE\ATORVASTATIN CALCIUM
     Dosage: 1 TABLET, 2X/DAY (SOMETIMES)
     Route: 048
  2. DEBERZA [Suspect]
     Active Substance: TOFOGLIFLOZIN
     Dosage: 1 DF, 1X/DAY
  3. TENELIA [Suspect]
     Active Substance: TENELIGLIPTIN
     Dosage: 1 DF, 1X/DAY
  4. MECOBALAMIN [Suspect]
     Active Substance: METHYLCOBALAMIN
     Dosage: 1 DF, 3X/DAY
  5. NATRIX [Suspect]
     Active Substance: INDAPAMIDE
     Dosage: 0.5 DF, 1X/DAY
  6. MAGNESIUM OXIDE. [Suspect]
     Active Substance: MAGNESIUM OXIDE
     Dosage: 1 DF, 2X/DAY
  7. MEMARY [Suspect]
     Active Substance: MEMANTINE HYDROCHLORIDE
     Dosage: 1 DF, 1X/DAY
  8. AZULENE G [Suspect]
     Active Substance: SODIUM GUALENATE MONOHYDRATE
     Dosage: 0.67 G, 3X/DAY
  9. CADUET [Suspect]
     Active Substance: AMLODIPINE BESYLATE\ATORVASTATIN CALCIUM
     Dosage: 1 TABLET, 1X/DAY (MORNING)
     Route: 048
  10. BISOPROLOL [Suspect]
     Active Substance: BISOPROLOL
     Dosage: 1 DF, 2X/DAY
  11. IFENPRODIL [Suspect]
     Active Substance: IFENPRODIL
     Dosage: 1 DF, 3X/DAY
  12. BUFFERIN [ACETYLSALICYLIC ACID;ALUMINIUM GLYCINATE;MAGNESIUM CARBONATE [Suspect]
     Active Substance: ASPIRIN\DIHYDROXYALUMINUM AMINOACETATE ANHYDROUS\MAGNESIUM CARBONATE
     Dosage: 1 DF, 1X/DAY

REACTIONS (4)
  - Loss of consciousness [Recovered/Resolved]
  - Fall [Recovered/Resolved]
  - Accidental overdose [Unknown]
  - Vomiting [Unknown]
